FAERS Safety Report 4538712-1 (Version None)
Quarter: 2004Q4

REPORT INFORMATION
  Report Type: 
  Country: None (occurrence: None)
  Receive Date: 20041222
  Receipt Date: 20041206
  Transmission Date: 20050328
  Serious: Yes (Hospitalization, Disabling)
  Sender: FDA-Public Use
  Company Number: USA041285390

PATIENT
  Age: 62 Year
  Sex: Female

DRUGS (2)
  1. HUMULIN 70/30 [Suspect]
     Indication: DIABETES MELLITUS
     Dates: end: 20041204
  2. LANTUS [Concomitant]

REACTIONS (5)
  - ACCIDENT [None]
  - BLINDNESS [None]
  - BLOOD GLUCOSE INCREASED [None]
  - IATROGENIC INJURY [None]
  - OPTIC NERVE INJURY [None]
